FAERS Safety Report 21517651 (Version 1)
Quarter: 2022Q4

REPORT INFORMATION
  Report Type: Report from Study
  Country: US (occurrence: US)
  Receive Date: 20221028
  Receipt Date: 20221028
  Transmission Date: 20230113
  Serious: Yes (Other)
  Sender: FDA-Public Use
  Company Number: US-ABBVIE-4177001

PATIENT
  Sex: Female

DRUGS (22)
  1. VENCLEXTA [Suspect]
     Active Substance: VENETOCLAX
     Indication: Acute myeloid leukaemia
     Route: 048
  2. VENCLEXTA [Suspect]
     Active Substance: VENETOCLAX
     Indication: Acute myeloid leukaemia
     Route: 048
  3. Acetaminophen Oral Tablet [Concomitant]
     Indication: Product used for unknown indication
     Dosage: 325 MG
  4. ZINC SULFATE [Concomitant]
     Active Substance: ZINC SULFATE
     Indication: Product used for unknown indication
  5. Aspirin 81 Oral Tablet Chewable 81 [Concomitant]
     Indication: Product used for unknown indication
  6. Os-Cal Ultra Oral Tablet [Concomitant]
     Indication: Product used for unknown indication
     Dosage: 600 MG
  7. Tums Oral Tablet Chewable [Concomitant]
     Indication: Product used for unknown indication
     Dosage: 500 MG
  8. PreserVision/Lutein Oral Capsule [Concomitant]
     Indication: Product used for unknown indication
  9. Losartan Potassium Oral Tablet 50 M [Concomitant]
     Indication: Product used for unknown indication
  10. Daily-Vite Multivitamin Oral Tablet [Concomitant]
     Indication: Product used for unknown indication
  11. Jakafi Oral Tablet [Concomitant]
     Indication: Product used for unknown indication
     Dosage: 5 MG
  12. Vidaza Injection Suspension Reconst [Concomitant]
     Indication: Product used for unknown indication
  13. Vitamin D (Cholecalciferol) Oral Ca [Concomitant]
     Indication: Product used for unknown indication
  14. Culturelle Digestive Health Oral Ca [Concomitant]
     Indication: Product used for unknown indication
  15. Danazol Oral Capsule [Concomitant]
     Indication: Product used for unknown indication
     Dosage: 200 MG
  16. Prolia Subcutaneous Solution Prefil [Concomitant]
     Indication: Product used for unknown indication
  17. Ondansetron HCl Oral Tablet [Concomitant]
     Indication: Product used for unknown indication
     Dosage: 4 MG
  18. Pantoprazole Sodium Oral Tablet Del [Concomitant]
     Indication: Product used for unknown indication
  19. Allopurinol Oral Tablet [Concomitant]
     Indication: Product used for unknown indication
     Dosage: 300 MG
  20. HYDROCHLOROTHIAZIDE [Concomitant]
     Active Substance: HYDROCHLOROTHIAZIDE
     Indication: Product used for unknown indication
     Dosage: 25 MG
  21. Euthyrox Oral Tablet [Concomitant]
     Indication: Product used for unknown indication
     Dosage: 125 MCG
  22. Prochlorperazine Maleate Oral Table [Concomitant]
     Indication: Product used for unknown indication

REACTIONS (2)
  - Transfusion [Unknown]
  - Illness [Unknown]
